FAERS Safety Report 16655206 (Version 3)
Quarter: 2022Q3

REPORT INFORMATION
  Report Type: Report from Study
  Country: CO (occurrence: CO)
  Receive Date: 20190801
  Receipt Date: 20220922
  Transmission Date: 20221027
  Serious: Yes (Hospitalization, Other)
  Sender: FDA-Public Use
  Company Number: CO-TAKEDA-2019TUS038491

PATIENT
  Age: 70 Year
  Sex: Male
  Weight: 58 kg

DRUGS (1)
  1. VEDOLIZUMAB [Suspect]
     Active Substance: VEDOLIZUMAB
     Indication: Crohn^s disease
     Dosage: 300 MILLIGRAM, MONTHLY
     Route: 042
     Dates: start: 20190415

REACTIONS (10)
  - Weight decreased [Not Recovered/Not Resolved]
  - Gastritis [Not Recovered/Not Resolved]
  - C-reactive protein increased [Not Recovered/Not Resolved]
  - Adverse event [Not Recovered/Not Resolved]
  - Fistula [Unknown]
  - Abdominal pain [Not Recovered/Not Resolved]
  - Fall [Unknown]
  - Face injury [Unknown]
  - Disorientation [Unknown]
  - Infection parasitic [Unknown]

NARRATIVE: CASE EVENT DATE: 20190530
